FAERS Safety Report 22907704 (Version 2)
Quarter: 2023Q4

REPORT INFORMATION
  Report Type: Report from Study
  Country: US (occurrence: US)
  Receive Date: 20230905
  Receipt Date: 20231009
  Transmission Date: 20240110
  Serious: Yes (Hospitalization)
  Sender: FDA-Public Use
  Company Number: US-SANDOZ-SDZ2023US022578

PATIENT
  Sex: Male
  Weight: 81.633 kg

DRUGS (3)
  1. TREPROSTINIL [Suspect]
     Active Substance: TREPROSTINIL
     Indication: Pulmonary arterial hypertension
     Dosage: 45 NG/KG/MIN, CONT
     Route: 042
     Dates: start: 20230525
  2. TREPROSTINIL [Suspect]
     Active Substance: TREPROSTINIL
     Dosage: 50 NG/KG/MIN, CONT
     Route: 042
     Dates: start: 20230525
  3. SILDENAFIL CITRATE [Concomitant]
     Active Substance: SILDENAFIL CITRATE
     Indication: Product used for unknown indication
     Route: 065

REACTIONS (2)
  - Lung disorder [Unknown]
  - Dyspnoea [Unknown]
